FAERS Safety Report 20248738 (Version 1)
Quarter: 2021Q4

REPORT INFORMATION
  Report Type: Spontaneous
  Country: CN (occurrence: CN)
  Receive Date: 20211229
  Receipt Date: 20211229
  Transmission Date: 20220303
  Serious: Yes (Other)
  Sender: FDA-Public Use
  Company Number: CN-009507513-2112CHN008915

PATIENT
  Age: 65 Year
  Sex: Male
  Weight: 53 kg

DRUGS (8)
  1. KEYTRUDA [Suspect]
     Active Substance: PEMBROLIZUMAB
     Indication: Lung neoplasm malignant
     Dosage: 200 MILLIGRAM, ONCE
     Route: 041
     Dates: start: 20211203, end: 20211203
  2. CARBOPLATIN [Suspect]
     Active Substance: CARBOPLATIN
     Indication: Lung neoplasm malignant
     Dosage: 400 MILLIGRAM, ONCE
     Route: 041
     Dates: start: 20211203, end: 20211203
  3. PACLITAXEL [Suspect]
     Active Substance: PACLITAXEL
     Indication: Lung neoplasm malignant
     Dosage: 200 MILLIGRAM, ONCE
     Route: 041
     Dates: start: 20211203, end: 20211203
  4. PACLITAXEL [Suspect]
     Active Substance: PACLITAXEL
     Dosage: 200 MILLIGRAM, ONCE
     Route: 041
     Dates: start: 20211210, end: 20211210
  5. SODIUM CHLORIDE [Concomitant]
     Active Substance: SODIUM CHLORIDE
     Indication: Lung neoplasm malignant
     Dosage: 100 MILLILITER (ALSO REPORTED AS 100 MILLIGRAM), ONCE
     Route: 041
     Dates: start: 20211203, end: 20211203
  6. SODIUM CHLORIDE [Concomitant]
     Active Substance: SODIUM CHLORIDE
     Dosage: 96 MILLILITER (ALSO REPORTED AS 96 MILLIGRAM), ONCE
     Route: 041
     Dates: start: 20211203, end: 20211203
  7. SODIUM CHLORIDE [Concomitant]
     Active Substance: SODIUM CHLORIDE
     Dosage: 100 MILLILITER (ALSO REPORTED AS 100 MILLIGRAM), ONCE
     Route: 041
     Dates: start: 20211210, end: 20211210
  8. DEXTROSE [Concomitant]
     Active Substance: DEXTROSE
     Indication: Lung neoplasm malignant
     Dosage: 500 MILLILITER (ALSO REPORTED AS 500 MILLIGRAM), ONCE
     Route: 041
     Dates: start: 20211203, end: 20211203

REACTIONS (3)
  - White blood cell count decreased [Not Recovered/Not Resolved]
  - Red blood cell count decreased [Not Recovered/Not Resolved]
  - Haemoglobin abnormal [Unknown]

NARRATIVE: CASE EVENT DATE: 20211210
